FAERS Safety Report 12138106 (Version 1)
Quarter: 2016Q1

REPORT INFORMATION
  Report Type: Spontaneous
  Country: US (occurrence: US)
  Receive Date: 20160302
  Receipt Date: 20160302
  Transmission Date: 20160526
  Serious: Yes (Death, Other)
  Sender: FDA-Public Use
  Company Number: US-HQ SPECIALTY-US-2016INT000080

PATIENT
  Age: 58 Year
  Sex: Male

DRUGS (4)
  1. PACLITAXEL. [Suspect]
     Active Substance: PACLITAXEL
     Indication: SQUAMOUS CELL CARCINOMA OF HEAD AND NECK
     Dosage: 175 MG/M2, DAY 1, EVERY 21 DAYS
     Route: 042
  2. CARBOPLATIN. [Suspect]
     Active Substance: CARBOPLATIN
     Indication: SQUAMOUS CELL CARCINOMA OF HEAD AND NECK
     Dosage: AUC 6 MG/ML MIN, DAY 1, EVERY 21 DAYS
     Route: 042
  3. AFATINIB [Suspect]
     Active Substance: AFATINIB
     Indication: SQUAMOUS CELL CARCINOMA OF HEAD AND NECK
     Dosage: 20 MG, DAILY, EVERY 21 DAYS
     Route: 048
  4. AFATINIB [Suspect]
     Active Substance: AFATINIB
     Dosage: 30 MG, DAILY, EVERY 21 DAYS
     Route: 048

REACTIONS (14)
  - Loss of consciousness [Unknown]
  - White blood cell count decreased [Unknown]
  - Dyspnoea [Unknown]
  - Pyrexia [Unknown]
  - Death [Fatal]
  - Cough [Unknown]
  - Diarrhoea [Unknown]
  - Haemoglobin decreased [Unknown]
  - Fatigue [Unknown]
  - Drug interaction [Unknown]
  - Pancytopenia [Unknown]
  - Platelet count decreased [Unknown]
  - Pain [Unknown]
  - Abdominal pain [Unknown]
